FAERS Safety Report 25621900 (Version 1)
Quarter: 2025Q3

REPORT INFORMATION
  Report Type: Spontaneous
  Country: US (occurrence: US)
  Receive Date: 20250730
  Receipt Date: 20250730
  Transmission Date: 20251020
  Serious: Yes (Life-Threatening, Hospitalization)
  Sender: MYLAN
  Company Number: US-MYLANLABS-2025M1062840

PATIENT
  Age: 26 Year
  Sex: Male

DRUGS (12)
  1. NOREPINEPHRINE [Suspect]
     Active Substance: NOREPINEPHRINE
     Indication: Shock
  2. NOREPINEPHRINE [Suspect]
     Active Substance: NOREPINEPHRINE
     Route: 065
  3. NOREPINEPHRINE [Suspect]
     Active Substance: NOREPINEPHRINE
     Route: 065
  4. NOREPINEPHRINE [Suspect]
     Active Substance: NOREPINEPHRINE
  5. HYDROCORTISONE [Suspect]
     Active Substance: HYDROCORTISONE
     Indication: Shock
  6. HYDROCORTISONE [Suspect]
     Active Substance: HYDROCORTISONE
     Route: 065
  7. HYDROCORTISONE [Suspect]
     Active Substance: HYDROCORTISONE
     Route: 065
  8. HYDROCORTISONE [Suspect]
     Active Substance: HYDROCORTISONE
  9. VASOPRESSIN [Suspect]
     Active Substance: VASOPRESSIN
     Indication: Shock
  10. VASOPRESSIN [Suspect]
     Active Substance: VASOPRESSIN
     Route: 065
  11. VASOPRESSIN [Suspect]
     Active Substance: VASOPRESSIN
     Route: 065
  12. VASOPRESSIN [Suspect]
     Active Substance: VASOPRESSIN

REACTIONS (1)
  - Drug ineffective [Unknown]
